FAERS Safety Report 5403485-7 (Version None)
Quarter: 2007Q3

REPORT INFORMATION
  Report Type: 
  Country: None (occurrence: None)
  Receive Date: 20070730
  Receipt Date: 20070724
  Transmission Date: 20080115
  Serious: Yes (Life-Threatening, Hospitalization)
  Sender: FDA-Public Use
  Company Number: 062-C5013-07071034

PATIENT
  Age: 68 Year
  Sex: Female

DRUGS (2)
  1. CC-5013 (LENALIDOMIDE) (CAPSULES) [Suspect]
     Indication: MULTIPLE MYELOMA
     Dosage: 25 MG, DAILY, ORAL
     Route: 048
     Dates: start: 20070627, end: 20070717
  2. DEXAMETHASONE TAB [Suspect]
     Indication: MULTIPLE MYELOMA
     Dosage: 40 MG, DAILY ON DAYS 1-4, 9-12, 17-20, ORAL
     Route: 048
     Dates: start: 20070627, end: 20070716

REACTIONS (2)
  - BUNDLE BRANCH BLOCK RIGHT [None]
  - PULMONARY EMBOLISM [None]
